FAERS Safety Report 10161260 (Version 2)
Quarter: 2014Q2

REPORT INFORMATION
  Report Type: Spontaneous
  Country: CH (occurrence: CH)
  Receive Date: 20140508
  Receipt Date: 20140526
  Transmission Date: 20141212
  Serious: Yes (Hospitalization)
  Sender: FDA-Public Use
  Company Number: CH-009507513-1405CHE003342

PATIENT
  Age: 55 Year
  Sex: Male

DRUGS (2)
  1. REMERON [Suspect]
     Indication: ANXIETY
     Dosage: 30 MG DF (900 MG)
     Route: 048
     Dates: start: 20140406, end: 20140406
  2. REMERON [Suspect]
     Indication: DEPRESSION
     Dosage: 15 MG, QD
     Route: 048
     Dates: start: 201402

REACTIONS (8)
  - Muscle spasms [Recovered/Resolved]
  - Electrocardiogram abnormal [Recovered/Resolved]
  - Bundle branch block left [Recovered/Resolved]
  - QRS axis abnormal [Recovered/Resolved]
  - Extrasystoles [Recovered/Resolved]
  - Somnolence [Recovered/Resolved]
  - Intentional overdose [Recovered/Resolved]
  - Blood pressure increased [Recovered/Resolved]
